FAERS Safety Report 14931597 (Version 1)
Quarter: 2018Q2

REPORT INFORMATION
  Report Type: Spontaneous
  Country: US (occurrence: US)
  Receive Date: 20180524
  Receipt Date: 20180524
  Transmission Date: 20180711
  Serious: No
  Sender: FDA-Public Use
  Company Number: US-ASTRAZENECA-2014SE61521

PATIENT
  Age: 743 Month
  Sex: Female

DRUGS (5)
  1. BYETTA [Suspect]
     Active Substance: EXENATIDE
     Dosage: UNK DATE 2014 - 10MCG FROM 04AUG2014 - 5MCG(ONG) {AM14005/JAN2016}, TWO TIMES A DAY
     Route: 058
     Dates: start: 20140804
  2. PRANDIN [Concomitant]
     Active Substance: REPAGLINIDE
  3. BYETTA [Suspect]
     Active Substance: EXENATIDE
     Dosage: UNK DATE 2014 - 10MCG FROM 04AUG2014 - 5MCG(ONG) {AM14005/JAN2016}, TWO TIMES A DAY
     Route: 058
     Dates: start: 2014
  4. JANUVIA [Concomitant]
     Active Substance: SITAGLIPTIN PHOSPHATE
  5. BYDUREON [Suspect]
     Active Substance: EXENATIDE
     Route: 065

REACTIONS (5)
  - Headache [Unknown]
  - Feeling abnormal [Recovering/Resolving]
  - Blood glucose decreased [Recovering/Resolving]
  - Glycosylated haemoglobin increased [Unknown]
  - Drug dose omission [Unknown]

NARRATIVE: CASE EVENT DATE: 201408
